FAERS Safety Report 18776560 (Version 2)
Quarter: 2021Q1

REPORT INFORMATION
  Report Type: Report from Study
  Country: DE (occurrence: DE)
  Receive Date: 20210123
  Receipt Date: 20210306
  Transmission Date: 20210419
  Serious: Yes (Death)
  Sender: FDA-Public Use
  Company Number: DE-ROCHE-2753587

PATIENT
  Sex: Female

DRUGS (23)
  1. AKYNZEO [Concomitant]
     Active Substance: NETUPITANT\PALONOSETRON HYDROCHLORIDE
     Dates: start: 20190416
  2. PANTOZOLE [Concomitant]
     Active Substance: PANTOPRAZOLE SODIUM
  3. VERGENTAN [Concomitant]
     Active Substance: ALIZAPRIDE HYDROCHLORIDE
     Dates: end: 20190401
  4. TRASTUZUMAB. [Suspect]
     Active Substance: TRASTUZUMAB
     Indication: BREAST CANCER METASTATIC
     Dosage: DATE OF LAST DOSE PRIOR TO SAE: 24/MAR/2020
     Route: 042
     Dates: start: 20190326
  5. DEXAMETHASONE. [Concomitant]
     Active Substance: DEXAMETHASONE
     Dates: start: 20190326
  6. DEXPANTHENOL. [Concomitant]
     Active Substance: DEXPANTHENOL
     Dates: start: 20190423, end: 20190718
  7. FOSFOMYCIN AL [Concomitant]
     Dates: start: 20191104, end: 20191106
  8. GRANISETRON [Concomitant]
     Active Substance: GRANISETRON
     Route: 042
     Dates: start: 20190326, end: 20190402
  9. METOPROLOL SUCCINATE. [Concomitant]
     Active Substance: METOPROLOL SUCCINATE
     Dates: start: 20190401
  10. PIVMELAM [Concomitant]
     Dates: start: 20191112, end: 20191114
  11. RAMIPRIL. [Concomitant]
     Active Substance: RAMIPRIL
  12. TRASTUZUMAB. [Suspect]
     Active Substance: TRASTUZUMAB
     Indication: BREAST CANCER METASTATIC
  13. MACROGOL [Concomitant]
     Active Substance: POLYETHYLENE GLYCOLS
  14. TRIMETHOPRIM. [Concomitant]
     Active Substance: TRIMETHOPRIM
     Dates: start: 20191115, end: 20191119
  15. PERTUZUMAB. [Suspect]
     Active Substance: PERTUZUMAB
     Indication: BREAST CANCER METASTATIC
     Dosage: DATE OF LAST DOSE PRIOR TO SAE: 24?MAR?2020
     Route: 042
     Dates: start: 20190326
  16. RIBOCICLIB. [Suspect]
     Active Substance: RIBOCICLIB
     Indication: BREAST CANCER METASTATIC
     Dosage: DATE OF LAST DOSE PRIOR TO SAE: 08?APR?2020
     Route: 048
     Dates: start: 20190608
  17. RIBOCICLIB. [Suspect]
     Active Substance: RIBOCICLIB
     Indication: BREAST CANCER METASTATIC
  18. GRANISETRON [Concomitant]
     Active Substance: GRANISETRON
     Route: 048
     Dates: start: 20190327, end: 20190328
  19. RAMIPRIL. [Concomitant]
     Active Substance: RAMIPRIL
     Dates: start: 20190702
  20. XARELTO [Concomitant]
     Active Substance: RIVAROXABAN
     Dates: start: 20200101
  21. MCP AL [Concomitant]
     Dates: start: 20190402
  22. PERTUZUMAB. [Suspect]
     Active Substance: PERTUZUMAB
     Indication: BREAST CANCER METASTATIC
  23. TILIDINE [Concomitant]
     Active Substance: TILIDINE
     Dates: start: 20190401

REACTIONS (1)
  - Disease progression [Fatal]
